FAERS Safety Report 17808813 (Version 1)
Quarter: 2020Q2

REPORT INFORMATION
  Report Type: Spontaneous
  Country: FR (occurrence: FR)
  Receive Date: 20200520
  Receipt Date: 20200520
  Transmission Date: 20200714
  Serious: Yes (Hospitalization)
  Sender: FDA-Public Use
  Company Number: FR-MYLANLABS-2020M1048976

PATIENT
  Age: 74 Year
  Sex: Male
  Weight: 82 kg

DRUGS (10)
  1. RAMIPRIL MYLAN 5 MG, COMPRIM? S?CABLE [Suspect]
     Active Substance: RAMIPRIL
     Indication: HYPERTENSION
     Dosage: 5 MILLIGRAM, QD
     Route: 048
     Dates: start: 2017, end: 20200415
  2. PANTOPRAZOLE [Suspect]
     Active Substance: PANTOPRAZOLE
     Indication: OESOPHAGITIS
     Dosage: 40 MILLIGRAM, BID
     Route: 042
     Dates: start: 20200408, end: 20200415
  3. TRAMADOL HYDROCHLORIDE. [Concomitant]
     Active Substance: TRAMADOL HYDROCHLORIDE
     Dosage: 50MG/6H SI DOULEUR
     Route: 048
  4. TRAMADOL HYDROCHLORIDE. [Concomitant]
     Active Substance: TRAMADOL HYDROCHLORIDE
     Dosage: 100 MILLIGRAM, BID
     Route: 048
  5. TRIMEBUTINE [Concomitant]
     Active Substance: TRIMEBUTINE
     Dosage: 1 MILLIGRAM, Q8H
     Route: 048
  6. ABASAGLAR [Concomitant]
     Active Substance: INSULIN GLARGINE
     Dosage: 20 INTERNATIONAL UNIT, QD
     Route: 058
  7. DELURSAN [Concomitant]
     Active Substance: URSODIOL
     Dosage: 1250 MILLIGRAM, QD
     Route: 048
  8. ALDACTONE [Suspect]
     Active Substance: SPIRONOLACTONE
     Indication: OEDEMA PERIPHERAL
     Dosage: 150 MILLIGRAM, QD
     Route: 048
     Dates: start: 2017, end: 20200414
  9. LASILIX FAIBLE [Suspect]
     Active Substance: FUROSEMIDE
     Indication: OEDEMA PERIPHERAL
     Dosage: 20 MILLIGRAM, QD
     Route: 048
     Dates: end: 20200414
  10. DUPHALAC [Concomitant]
     Active Substance: LACTULOSE
     Dosage: 2 DOSAGE FORM, QD
     Route: 048

REACTIONS (1)
  - Hyponatraemia [Recovering/Resolving]

NARRATIVE: CASE EVENT DATE: 20200405
